FAERS Safety Report 6008700-7 (Version None)
Quarter: 2008Q4

REPORT INFORMATION
  Report Type: 
  Country: None (occurrence: None)
  Receive Date: 20081217
  Receipt Date: 20080104
  Transmission Date: 20090506
  Serious: No
  Sender: FDA-Public Use
  Company Number: US-AMGEN-KDL259291

PATIENT
  Sex: Male

DRUGS (1)
  1. ENBREL [Suspect]
     Indication: ANKYLOSING SPONDYLITIS
     Route: 058
     Dates: start: 20071116

REACTIONS (4)
  - COUGH [None]
  - FEELING ABNORMAL [None]
  - PYREXIA [None]
  - RESPIRATORY TRACT CONGESTION [None]
